FAERS Safety Report 9856324 (Version 3)
Quarter: 2014Q1

REPORT INFORMATION
  Report Type: Report from Study
  Country: DE (occurrence: DE)
  Receive Date: 20140130
  Receipt Date: 20140131
  Transmission Date: 20141002
  Serious: Yes (Death, Hospitalization, Disabling, Other)
  Sender: FDA-Public Use
  Company Number: PHHO2012DE011697

PATIENT
  Age: 55 Year
  Sex: Male
  Weight: 78 kg

DRUGS (9)
  1. EVEROLIMUS [Suspect]
     Indication: LUNG TRANSPLANT
     Dosage: 0.25 MG, EVERY 2 DAY
     Dates: start: 20120607, end: 20120808
  2. TACROLIMUS [Suspect]
     Indication: LUNG TRANSPLANT
     Dosage: 0.5 MG, EVERY 2 DAYS
     Route: 048
     Dates: start: 20120522, end: 20120807
  3. CELLCEPT [Suspect]
     Indication: LUNG TRANSPLANT
     Dosage: 500 MG, BID
     Route: 048
     Dates: start: 20120412, end: 20120808
  4. PREDNISOLON [Suspect]
     Indication: LUNG TRANSPLANT
     Dosage: 5 MG, BID
     Route: 048
     Dates: start: 20120804, end: 20120808
  5. URBASON [Suspect]
  6. COTRIM FORTE [Concomitant]
     Indication: PROPHYLAXIS
     Dosage: 480 MG, TUE +FRI DAYS
     Dates: start: 201012
  7. ITRACONAZOLE [Concomitant]
     Indication: PROPHYLAXIS
     Dosage: 100 MG, BID
     Route: 048
     Dates: start: 20120412, end: 20120808
  8. PRAVASIN [Concomitant]
     Indication: PROPHYLAXIS
     Dosage: 20 MG, BID
     Dates: start: 201012
  9. PANTOZOL [Concomitant]
     Indication: PROPHYLAXIS
     Dosage: 40 MG, BID
     Dates: start: 201012

REACTIONS (5)
  - Lung transplant rejection [Recovered/Resolved with Sequelae]
  - Complications of transplanted lung [Recovered/Resolved with Sequelae]
  - Pneumonia [Recovered/Resolved with Sequelae]
  - Restrictive pulmonary disease [Fatal]
  - Paraparesis [Recovered/Resolved]
